FAERS Safety Report 10004359 (Version 2)
Quarter: 2014Q1

REPORT INFORMATION
  Report Type: Spontaneous
  Country: US (occurrence: US)
  Receive Date: 20140312
  Receipt Date: 20140312
  Transmission Date: 20141002
  Serious: No
  Sender: FDA-Public Use
  Company Number: US-INCYTE CORPORATION-2013IN001718

PATIENT
  Age: 71 Year
  Sex: Male
  Weight: 92.97 kg

DRUGS (8)
  1. JAKAFI [Suspect]
     Indication: MYELOFIBROSIS
     Dosage: 15 MG, BID
     Route: 048
     Dates: start: 20130704
  2. FUROSEMIDE [Concomitant]
     Dosage: 40 MG, UNK
     Route: 048
  3. LOVENOX [Concomitant]
     Dosage: 100 MG, UNK
     Route: 017
  4. POTASSIUM [Concomitant]
     Dosage: 10 MEQ, UNK
     Route: 048
  5. HYDROCHLOROTHIAZIDE, LISINOPRIL [Concomitant]
     Dosage: 20-25 MG, UNK
  6. OMEPRAZOLE [Concomitant]
     Dosage: 40 MG, UNK
     Route: 048
  7. HYDROXYUREA [Concomitant]
     Dosage: 500 MG, UNK
     Route: 048
  8. VITAMIN B COMPLEX [Concomitant]
     Dosage: UNK

REACTIONS (3)
  - Abdominal pain upper [Recovered/Resolved]
  - Headache [Recovered/Resolved]
  - Dizziness [Recovered/Resolved]
